FAERS Safety Report 5717304-2 (Version None)
Quarter: 2008Q2

REPORT INFORMATION
  Report Type: 
  Country: None (occurrence: None)
  Receive Date: 20080425
  Receipt Date: 20080415
  Transmission Date: 20081010
  Serious: Yes (Life-Threatening, Other)
  Sender: FDA-Public Use
  Company Number: US-RANBAXY-2008RR-14531

PATIENT

DRUGS (3)
  1. FLUCONAZOLE [Suspect]
     Indication: SYSTEMIC CANDIDA
     Dosage: 600 MG, UNK
  2. FLUCONAZOLE [Suspect]
     Dosage: 800 MG, UNK
  3. AMIODARONE RPG 200 MG COMPRIME SECABLE [Suspect]

REACTIONS (1)
  - TORSADE DE POINTES [None]
